FAERS Safety Report 5392167-6 (Version None)
Quarter: 2007Q3

REPORT INFORMATION
  Report Type: 
  Country: None (occurrence: None)
  Receive Date: 20070720
  Receipt Date: 20070713
  Transmission Date: 20080115
  Serious: Yes (Disabling)
  Sender: FDA-Public Use
  Company Number: FR-AVENTIS-200712072FR

PATIENT
  Age: 54 Year
  Sex: Female

DRUGS (9)
  1. FLAGYL [Suspect]
     Indication: RETROPERITONEAL ABSCESS
     Dates: start: 20060718
  2. FLAGYL [Suspect]
     Indication: ACTINOMYCOSIS
     Dates: start: 20060718
  3. ATORVASTATIN CALCIUM [Concomitant]
     Dates: start: 20060820
  4. PLAVIX [Concomitant]
     Dates: start: 20060101
  5. ASPEGIC 1000 [Concomitant]
     Dates: start: 20060101
  6. KARDEGIC                           /00002703/ [Concomitant]
     Dates: start: 20060101
  7. TRIATEC                            /00885601/ [Concomitant]
     Dates: start: 20060101
  8. LASILIX                            /00032601/ [Concomitant]
     Dates: start: 20060101
  9. CARDENSIEL [Concomitant]
     Dates: start: 20060101

REACTIONS (1)
  - POLYNEUROPATHY [None]
